FAERS Safety Report 6443477-2 (Version None)
Quarter: 2009Q4

REPORT INFORMATION
  Report Type: 
  Country: None (occurrence: None)
  Receive Date: 20091117
  Receipt Date: 20091111
  Transmission Date: 20100525
  Serious: No
  Sender: FDA-Public Use
  Company Number: US-B.I. PHARMACEUTICALS,INC./RIDGEFIELD-2009-BP-04627BP

PATIENT
  Sex: Female

DRUGS (5)
  1. SPIRIVA [Suspect]
     Indication: CHRONIC OBSTRUCTIVE PULMONARY DISEASE
     Dosage: 18 MCG
     Route: 055
     Dates: start: 20090101
  2. HYDROCHLOROTHIAZIDE [Concomitant]
     Indication: HYPERTENSION
     Route: 048
     Dates: start: 20070101
  3. TIMOLOL [Concomitant]
     Indication: GLAUCOMA
     Route: 031
     Dates: end: 20090901
  4. CALCIUM [Concomitant]
     Indication: PROPHYLAXIS
  5. VITAMIN D [Concomitant]
     Indication: PROPHYLAXIS

REACTIONS (4)
  - ARTHRITIS [None]
  - INTRAOCULAR PRESSURE INCREASED [None]
  - MUSCULOSKELETAL PAIN [None]
  - NERVE INJURY [None]
